FAERS Safety Report 14185831 (Version 1)
Quarter: 2017Q4

REPORT INFORMATION
  Report Type: Report from Study
  Country: None (occurrence: US)
  Receive Date: 20171114
  Receipt Date: 20171114
  Transmission Date: 20180321
  Serious: Yes (Hospitalization, Other)
  Sender: FDA-Public Use
  Company Number: US-ABBVIE-17K-163-2019854-00

PATIENT
  Age: 49 Year
  Sex: Male

DRUGS (3)
  1. HUMIRA [Suspect]
     Active Substance: ADALIMUMAB
     Route: 058
     Dates: start: 2013, end: 2013
  2. HUMIRA [Suspect]
     Active Substance: ADALIMUMAB
     Indication: CROHN^S DISEASE
     Route: 058
     Dates: start: 2013, end: 2013
  3. HUMIRA [Suspect]
     Active Substance: ADALIMUMAB
     Route: 058
     Dates: start: 2013, end: 201706

REACTIONS (7)
  - Intervertebral disc protrusion [Recovering/Resolving]
  - Nerve compression [Recovering/Resolving]
  - Hypoaesthesia [Recovered/Resolved]
  - Injection site scab [Recovered/Resolved]
  - Injection site erythema [Recovered/Resolved]
  - Myalgia [Recovering/Resolving]
  - Procedural pain [Recovered/Resolved]

NARRATIVE: CASE EVENT DATE: 2017
